FAERS Safety Report 12211882 (Version 6)
Quarter: 2016Q2

REPORT INFORMATION
  Report Type: Report from Study
  Country: GR (occurrence: GR)
  Receive Date: 20160325
  Receipt Date: 20160602
  Transmission Date: 20160815
  Serious: Yes (Hospitalization)
  Sender: FDA-Public Use
  Company Number: GR-ABBVIE-16P-066-1587231-00

PATIENT
  Age: 80 Year
  Sex: Female

DRUGS (7)
  1. DUODOPA [Suspect]
     Active Substance: CARBIDOPA\LEVODOPA
     Dosage: MORNING DOSE:15ML, CONTINUOUS RATE:4.1ML/H, EXTRA DOSE:1.5ML
     Route: 050
     Dates: start: 20160311, end: 20160317
  2. DUODOPA [Suspect]
     Active Substance: CARBIDOPA\LEVODOPA
     Dosage: MORNING DOSE: 12ML, CONTINUOUS RATE: 3.5ML/HR, EXTRA DOSE: 1.8ML
     Route: 050
     Dates: start: 20160523, end: 20160524
  3. DUODOPA [Suspect]
     Active Substance: CARBIDOPA\LEVODOPA
     Indication: PARKINSON^S DISEASE
     Route: 050
     Dates: start: 20160209, end: 20160311
  4. DUODOPA [Suspect]
     Active Substance: CARBIDOPA\LEVODOPA
     Dosage: MORNING DOSE: 17ML, CONTINUOUS RATE: 5ML/H, EXTRA DOSE: 1.8ML
     Route: 050
     Dates: start: 20160425, end: 20160510
  5. MADOPAR [Concomitant]
     Active Substance: BENSERAZIDE HYDROCHLORIDE\LEVODOPA
     Indication: PARKINSON^S DISEASE
     Route: 048
     Dates: start: 20160524
  6. DUODOPA [Suspect]
     Active Substance: CARBIDOPA\LEVODOPA
     Dosage: MORNING DOSE:15ML, CONTINUOUS RATE:4.1ML/H, EXTRA DOSE:1.5ML
     Route: 050
     Dates: start: 20160318
  7. DUODOPA [Suspect]
     Active Substance: CARBIDOPA\LEVODOPA
     Dosage: MORNING DOSE: 15 ML, CONTINUOUS RATE: 4,3 ML/H, EXTRA DOSE: 1,8
     Route: 050
     Dates: end: 20160425

REACTIONS (14)
  - Urinary tract infection [Not Recovered/Not Resolved]
  - Pyrexia [Recovered/Resolved]
  - Pyrexia [Recovered/Resolved]
  - C-reactive protein increased [Not Recovered/Not Resolved]
  - Dyskinesia [Not Recovered/Not Resolved]
  - Haematocrit decreased [Recovering/Resolving]
  - White blood cell count increased [Not Recovered/Not Resolved]
  - Haematocrit decreased [Not Recovered/Not Resolved]
  - Urinary tract infection [Not Recovered/Not Resolved]
  - Asthenia [Not Recovered/Not Resolved]
  - Hypotension [Recovered/Resolved]
  - Tachycardia [Recovered/Resolved]
  - General physical health deterioration [Unknown]
  - Gait disturbance [Not Recovered/Not Resolved]

NARRATIVE: CASE EVENT DATE: 20160311
